FAERS Safety Report 13783121 (Version 2)
Quarter: 2017Q3

REPORT INFORMATION
  Report Type: Spontaneous
  Country: US (occurrence: US)
  Receive Date: 20170724
  Receipt Date: 20170725
  Transmission Date: 20171127
  Serious: Yes (Hospitalization, Other)
  Sender: FDA-Public Use
  Company Number: US-GLAXOSMITHKLINE-US2017GSK113545

PATIENT
  Age: 70 Year
  Sex: Female

DRUGS (3)
  1. FLOLAN [Suspect]
     Active Substance: EPOPROSTENOL SODIUM
     Indication: PULMONARY HYPERTENSION
  2. FLOLAN [Suspect]
     Active Substance: EPOPROSTENOL SODIUM
     Indication: PULMONARY HYPERTENSION
     Dosage: 89.6 NG/KG/MIN, CO
     Dates: start: 20131202
  3. FLOLAN [Suspect]
     Active Substance: EPOPROSTENOL SODIUM
     Dosage: 94 NG/KG/MIN, CO

REACTIONS (1)
  - Pulmonary arterial hypertension [Unknown]

NARRATIVE: CASE EVENT DATE: 20170718
